FAERS Safety Report 5389854-2 (Version None)
Quarter: 2007Q3

REPORT INFORMATION
  Report Type: 
  Country: None (occurrence: None)
  Receive Date: 20070718
  Receipt Date: 20070709
  Transmission Date: 20080115
  Serious: Yes (Other)
  Sender: FDA-Public Use
  Company Number: PHBS2007BR07532

PATIENT
  Age: 30 Year
  Sex: Female
  Weight: 65 kg

DRUGS (5)
  1. OLCADIL [Suspect]
     Indication: DEPRESSION
     Dosage: 4 MG, QHS
     Route: 048
     Dates: start: 20070415
  2. TOFRANIL [Suspect]
     Indication: DEPRESSION
     Dosage: 50 MG, BID
     Route: 048
     Dates: start: 20061126
  3. AMPLICTIL [Concomitant]
     Dosage: 25 MG, QID
     Route: 048
  4. LORAZEPAM [Concomitant]
     Indication: DEPRESSION
     Dosage: 25 MG, QID
     Route: 048
  5. SONEBORN [Concomitant]
     Indication: INSOMNIA
     Dosage: 1 DF, QHS
     Route: 048

REACTIONS (6)
  - CRYING [None]
  - DRUG INEFFECTIVE [None]
  - HEAD DISCOMFORT [None]
  - INSOMNIA [None]
  - MEMORY IMPAIRMENT [None]
  - NERVOUSNESS [None]
